FAERS Safety Report 5015404-6 (Version None)
Quarter: 2006Q2

REPORT INFORMATION
  Report Type: 
  Country: None (occurrence: None)
  Receive Date: 20060601
  Receipt Date: 20060215
  Transmission Date: 20061013
  Serious: Yes (Other)
  Sender: FDA-Public Use
  Company Number: PHMT2006CA00693

PATIENT
  Age: 73 Year
  Sex: Male

DRUGS (1)
  1. DIOVAN [Suspect]
     Dosage: 80 MG
     Route: 048
     Dates: start: 20060214

REACTIONS (3)
  - DYSPHAGIA [None]
  - DYSPNOEA [None]
  - PHARYNGOLARYNGEAL PAIN [None]
